FAERS Safety Report 20099668 (Version 1)
Quarter: 2021Q4

REPORT INFORMATION
  Report Type: Spontaneous
  Country: JP (occurrence: JP)
  Receive Date: 20211123
  Receipt Date: 20211123
  Transmission Date: 20220303
  Serious: Yes (Hospitalization)
  Sender: FDA-Public Use
  Company Number: JP-LUPIN PHARMACEUTICALS INC.-2021-22670

PATIENT
  Age: 5 Decade
  Sex: Male

DRUGS (20)
  1. LORAZEPAM [Suspect]
     Active Substance: LORAZEPAM
     Indication: Akathisia
     Dosage: 0.5 MILLIGRAM, TID, FROM DAY 14
     Route: 065
  2. LORAZEPAM [Suspect]
     Active Substance: LORAZEPAM
     Indication: Neuropathy peripheral
  3. CISPLATIN [Concomitant]
     Active Substance: CISPLATIN
     Indication: Pleural mesothelioma malignant recurrent
     Dosage: 75 MILLIGRAM/SQ. METER (FIRST-LINE TREATMENT; 3 COURSES)
     Route: 065
  4. CARBOPLATIN [Concomitant]
     Active Substance: CARBOPLATIN
     Indication: Pleural mesothelioma malignant recurrent
     Dosage: UNK (AREA UNDER THE CURVE 5; THIRD-LINE TREATMENT)
     Route: 065
  5. PEMETREXED [Concomitant]
     Active Substance: PEMETREXED
     Indication: Pleural mesothelioma malignant recurrent
     Dosage: 500 MILLIGRAM/SQ. METER (FIRST-LINE TREATMENT; 3 COURSES)
     Route: 065
  6. PEMETREXED [Concomitant]
     Active Substance: PEMETREXED
     Dosage: 500 MILLIGRAM/SQ. METER (THIRD-LINE TREATMENT)
     Route: 065
  7. Clostridium butyricum miyairi 588 [Concomitant]
     Indication: Probiotic therapy
     Dosage: 40 MILLIGRAM
     Route: 065
  8. URSODIOL [Concomitant]
     Active Substance: URSODIOL
     Indication: Product used for unknown indication
     Dosage: 200 MILLIGRAM
     Route: 065
  9. TIZANIDINE [Concomitant]
     Active Substance: TIZANIDINE
     Indication: Product used for unknown indication
     Dosage: 2 MILLIGRAM
     Route: 065
  10. SHAKUYAKUKANZOTO [Concomitant]
     Active Substance: HERBALS
     Indication: Phytotherapy
     Dosage: 2.5 GRAM, TID
     Route: 065
  11. VONOPRAZAN [Concomitant]
     Active Substance: VONOPRAZAN
     Indication: Product used for unknown indication
     Dosage: 10 MILLIGRAM
     Route: 065
  12. VITAMINS [Concomitant]
     Active Substance: VITAMINS
     Indication: Vitamin supplementation
     Dosage: 1 GRAM
     Route: 065
  13. FOLIC ACID [Concomitant]
     Active Substance: FOLIC ACID
     Indication: Vitamin supplementation
     Dosage: 0.5 MILLIGRAM
     Route: 065
  14. FERROUS FUMARATE [Concomitant]
     Active Substance: FERROUS FUMARATE
     Indication: Product used for unknown indication
     Dosage: 100 MG, SUSTAINED-RELEASE
     Route: 065
  15. HYDROMORPHONE [Concomitant]
     Active Substance: HYDROMORPHONE
     Indication: Product used for unknown indication
     Dosage: 8 MILLIGRAM, QD (SUSTAINED-RELEASE)
     Route: 065
  16. PALONOSETRON [Concomitant]
     Active Substance: PALONOSETRON
     Indication: Chemotherapy side effect prophylaxis
     Dosage: 0.75 MG, ON DAY 1
     Route: 065
  17. DEXAMETHASONE [Concomitant]
     Active Substance: DEXAMETHASONE
     Indication: Chemotherapy side effect prophylaxis
     Dosage: 9.9 MG, ON DAY 1 (INFUSION)
     Route: 065
  18. DEXAMETHASONE [Concomitant]
     Active Substance: DEXAMETHASONE
     Dosage: 4 MILLIGRAM (ON DAYS 2 AND 3)
     Route: 048
  19. APREPITANT [Concomitant]
     Active Substance: APREPITANT
     Indication: Chemotherapy side effect prophylaxis
     Dosage: 125 MG, ON DAY 1
     Route: 048
  20. APREPITANT [Concomitant]
     Active Substance: APREPITANT
     Dosage: 80 MG, ON DAYS 2 AND 3
     Route: 048

REACTIONS (1)
  - Drug ineffective for unapproved indication [Unknown]
